FAERS Safety Report 8578468-9 (Version None)
Quarter: 2012Q3

REPORT INFORMATION
  Report Type: 
  Country: None (occurrence: None)
  Receive Date: 20120808
  Receipt Date: 20120723
  Transmission Date: 20120928
  Serious: No
  Sender: FDA-Public Use
  Company Number: US-JNJFOC-20120603399

PATIENT
  Sex: Female
  Weight: 72.58 kg

DRUGS (8)
  1. ABILIFY [Concomitant]
     Indication: SCHIZOPHRENIA
     Route: 065
  2. INVEGA [Suspect]
     Route: 048
     Dates: start: 20120501
  3. XANAX [Concomitant]
     Route: 048
  4. LEXAPRO [Suspect]
     Indication: PRODUCT USED FOR UNKNOWN INDICATION
     Route: 048
     Dates: start: 20120501
  5. UNKNOWN MEDICATION [Concomitant]
     Indication: AMYOTROPHIC LATERAL SCLEROSIS
     Route: 065
  6. INVEGA [Suspect]
     Indication: PRODUCT USED FOR UNKNOWN INDICATION
     Route: 048
  7. INVEGA [Suspect]
     Route: 048
  8. GABAPENTIN [Concomitant]
     Route: 048

REACTIONS (2)
  - SOMNOLENCE [None]
  - DEPRESSION [None]
